FAERS Safety Report 24927491 (Version 1)
Quarter: 2025Q1

REPORT INFORMATION
  Report Type: Spontaneous
  Country: US (occurrence: US)
  Receive Date: 20250205
  Receipt Date: 20250205
  Transmission Date: 20250408
  Serious: No
  Sender: ROCHE
  Company Number: US-CHEPLA-2025001277

PATIENT
  Sex: Male
  Weight: 2.045 kg

DRUGS (2)
  1. VALGANCICLOVIR [Suspect]
     Active Substance: VALGANCICLOVIR
     Indication: Cerebellar hypoplasia
     Dosage: TWICE A DAY
     Route: 065
  2. VALGANCICLOVIR [Suspect]
     Active Substance: VALGANCICLOVIR
     Indication: Congenital cytomegalovirus infection

REACTIONS (2)
  - Off label use [Unknown]
  - No adverse event [Unknown]
